FAERS Safety Report 6709287-3 (Version None)
Quarter: 2010Q2

REPORT INFORMATION
  Report Type: 
  Country: None (occurrence: None)
  Receive Date: 20100504
  Receipt Date: 20100428
  Transmission Date: 20101027
  Serious: Yes (Hospitalization)
  Sender: FDA-Public Use
  Company Number: IN-ELI_LILLY_AND_COMPANY-IN201004007915

PATIENT
  Age: 25 Year
  Sex: Male

DRUGS (2)
  1. HUMINSULIN 30% REGULAR, 70% NPH [Suspect]
     Indication: TYPE 1 DIABETES MELLITUS
  2. HUMINSULIN 30% REGULAR, 70% NPH [Suspect]
     Dates: start: 20100401

REACTIONS (1)
  - DIABETES MELLITUS INADEQUATE CONTROL [None]
